FAERS Safety Report 20526844 (Version 1)
Quarter: 2022Q1

REPORT INFORMATION
  Report Type: Spontaneous
  Country: US (occurrence: None)
  Receive Date: 20220227
  Receipt Date: 20220227
  Transmission Date: 20220423
  Serious: Yes (Hospitalization)
  Sender: FDA-Public Use
  Company Number: None

PATIENT
  Age: 45 Year
  Sex: Female
  Weight: 68.04 kg

DRUGS (6)
  1. MIRENA [Suspect]
     Active Substance: LEVONORGESTREL
  2. vitamins adk [Concomitant]
  3. MAGNESIUM [Concomitant]
     Active Substance: MAGNESIUM
  4. ASIAN GINSENG [Concomitant]
     Active Substance: ASIAN GINSENG
  5. DANDELION ROOT [Concomitant]
  6. c60 [Concomitant]

REACTIONS (14)
  - Feeling abnormal [None]
  - Partner stress [None]
  - Premature menopause [None]
  - Emotional distress [None]
  - Anxiety [None]
  - Complication associated with device [None]
  - Skin burning sensation [None]
  - Paranoia [None]
  - Personal relationship issue [None]
  - Progesterone abnormal [None]
  - Economic problem [None]
  - Impaired quality of life [None]
  - Neurological complication associated with device [None]
  - Device psychogenic complication [None]

NARRATIVE: CASE EVENT DATE: 20210930
